FAERS Safety Report 18249153 (Version 1)
Quarter: 2020Q3

REPORT INFORMATION
  Report Type: Spontaneous
  Country: US (occurrence: US)
  Receive Date: 20200909
  Receipt Date: 20200909
  Transmission Date: 20201103
  Serious: No
  Sender: FDA-Public Use
  Company Number: US-UNICHEM PHARMACEUTICALS (USA) INC-UCM202002-000267

PATIENT
  Age: 81 Year
  Sex: Male
  Weight: 83 kg

DRUGS (2)
  1. BISOPROLOL FUMARATE. [Suspect]
     Active Substance: BISOPROLOL FUMARATE
     Indication: ANEURYSM
     Dosage: 2.5 MG TABLET BY SPLITTING 5 MG TABLETS AT NIGHT
     Route: 048
     Dates: start: 201911
  2. BISOPROLOL FUMARATE. [Suspect]
     Active Substance: BISOPROLOL FUMARATE
     Indication: HEART RATE INCREASED

REACTIONS (3)
  - Product use in unapproved indication [Unknown]
  - Pollakiuria [Not Recovered/Not Resolved]
  - Wrong technique in product usage process [Unknown]
